FAERS Safety Report 7419146-9 (Version None)
Quarter: 2011Q2

REPORT INFORMATION
  Report Type: 
  Country: None (occurrence: None)
  Receive Date: 20110415
  Receipt Date: 20110407
  Transmission Date: 20111010
  Serious: Yes (Hospitalization, Other)
  Sender: FDA-Public Use
  Company Number: US-GENZYME-CLOF-1001475

PATIENT
  Sex: Male

DRUGS (11)
  1. LEVALBUTEROL HYDROCHLORIDE [Concomitant]
     Indication: OXYGEN SATURATION
     Dosage: UNK
     Route: 065
     Dates: start: 20110201
  2. CLOLAR [Suspect]
     Indication: ACUTE LYMPHOCYTIC LEUKAEMIA
     Dosage: UNK
     Route: 065
  3. FUROSEMIDE [Concomitant]
     Indication: FLUID RETENTION
     Dosage: IV DRIP
     Route: 041
     Dates: start: 20110201
  4. OXYGEN [Concomitant]
     Indication: RESPIRATORY DISTRESS
     Dosage: 35 % BLOW-BY
     Route: 055
     Dates: start: 20110218, end: 20110201
  5. FOSCARNET [Concomitant]
     Indication: CYTOMEGALOVIRUS INFECTION
     Dosage: UNK
     Route: 065
     Dates: start: 20110201
  6. MELPHALAN HYDROCHLORIDE [Suspect]
     Indication: ACUTE LYMPHOCYTIC LEUKAEMIA
     Dosage: UNK
     Route: 065
  7. CELECOXIB [Concomitant]
     Indication: PROPHYLAXIS
     Dosage: UNK
     Route: 065
     Dates: start: 20110201
  8. CYTOGAM [Concomitant]
     Indication: CYTOMEGALOVIRUS INFECTION
     Dosage: UNK
     Route: 065
     Dates: start: 20110201
  9. THIOTEPA [Suspect]
     Indication: ACUTE LYMPHOCYTIC LEUKAEMIA
     Dosage: UNK
     Route: 065
  10. DOPAMINE HCL [Concomitant]
     Indication: FLUID RETENTION
     Dosage: LOW-DOSE IV DRIP
     Route: 041
     Dates: start: 20110201
  11. OXYGEN [Concomitant]
     Indication: HYPOXIA

REACTIONS (3)
  - LUNG INFILTRATION [None]
  - PNEUMONITIS [None]
  - HYPOXIA [None]
